FAERS Safety Report 5491801-X (Version None)
Quarter: 2007Q4

REPORT INFORMATION
  Report Type: 
  Country: None (occurrence: None)
  Receive Date: 20071018
  Receipt Date: 20071018
  Transmission Date: 20080405
  Serious: Yes (Other)
  Sender: FDA-Public Use
  Company Number: None

PATIENT
  Age: 53 Year
  Sex: Male
  Weight: 67.586 kg

DRUGS (6)
  1. ARIPIPRAZOLE [Suspect]
     Indication: THINKING ABNORMAL
     Dosage: 15MG QHS PO  10MG QHS PO
     Route: 048
     Dates: start: 20070901, end: 20071003
  2. RANITIDINE HCL [Concomitant]
  3. PANTOPRAZOLE SODIUM [Concomitant]
  4. LORAZEPAM [Concomitant]
  5. MULTI-VITAMIN [Concomitant]
  6. CHOLECALCIFEROL [Concomitant]

REACTIONS (1)
  - DIABETES MELLITUS [None]
